FAERS Safety Report 4627242-4 (Version None)
Quarter: 2005Q2

REPORT INFORMATION
  Report Type: 
  Country: None (occurrence: None)
  Receive Date: 20050401
  Receipt Date: 20050401
  Transmission Date: 20051028
  Serious: Yes (Disabling)
  Sender: FDA-Public Use
  Company Number: None

PATIENT
  Age: 57 Year
  Sex: Male
  Weight: 66.6788 kg

DRUGS (9)
  1. SEPTRA DS [Suspect]
     Indication: PROSTATITIS
     Dosage: 1 2X DAY ORAL
     Route: 048
     Dates: start: 20050313, end: 20050317
  2. TOPAMAX [Concomitant]
  3. LISINOPRIL [Concomitant]
  4. HYDROCHLOROTHIAZIDE [Concomitant]
  5. WELLBUTRIN [Concomitant]
  6. ALPRAZOLAM [Concomitant]
  7. NEXIUM [Concomitant]
  8. BUFFERED ASPIRIN [Concomitant]
  9. UROXATRAL [Concomitant]

REACTIONS (7)
  - BLISTER [None]
  - ERYTHEMA [None]
  - FUNGAL INFECTION [None]
  - PENILE PAIN [None]
  - PENILE SWELLING [None]
  - PENILE ULCERATION [None]
  - PHARMACEUTICAL PRODUCT COMPLAINT [None]
